FAERS Safety Report 9147271 (Version 3)
Quarter: 2014Q3

REPORT INFORMATION
  Report Type: Spontaneous
  Country: CO (occurrence: CO)
  Receive Date: 20130307
  Receipt Date: 20140930
  Transmission Date: 20150326
  Serious: Yes (Hospitalization)
  Sender: FDA-Public Use
  Company Number: CO-BRISTOL-MYERS SQUIBB COMPANY-17422460

PATIENT
  Age: 48 Year
  Sex: Female

DRUGS (2)
  1. ORENCIA [Suspect]
     Active Substance: ABATACEPT
     Indication: RHEUMATOID ARTHRITIS
     Dosage: FORMULATION-ORENCIA 250 INJ?2VIALES-28DIAS
     Route: 042
     Dates: start: 20121205, end: 20130204
  2. METHOTREXATE [Suspect]
     Active Substance: METHOTREXATE
     Indication: RHEUMATOID ARTHRITIS

REACTIONS (11)
  - Malaise [Recovered/Resolved]
  - Gastroenteritis [Recovered/Resolved]
  - Pruritus generalised [Recovered/Resolved]
  - Colitis [Recovered/Resolved]
  - Genital infection [Recovered/Resolved]
  - Mouth ulceration [Recovered/Resolved]
  - Oral disorder [Recovered/Resolved]
  - Urticaria [Recovered/Resolved]
  - White blood cell disorder [Recovered/Resolved]
  - Back pain [Unknown]
  - Chromaturia [Unknown]

NARRATIVE: CASE EVENT DATE: 20130215
